FAERS Safety Report 4357774-8 (Version None)
Quarter: 2004Q2

REPORT INFORMATION
  Report Type: 
  Country: None (occurrence: None)
  Receive Date: 20040513
  Receipt Date: 20040503
  Transmission Date: 20050107
  Serious: Yes (Other)
  Sender: FDA-Public Use
  Company Number: BR-BRISTOL-MYERS SQUIBB COMPANY-12579058

PATIENT
  Age: 40 Year
  Sex: Female

DRUGS (2)
  1. COUMADIN [Suspect]
     Indication: PULMONARY EMBOLISM
     Dosage: INITIALLY, DOSE WAS INCREASED TO 7.5MG, THEN DISCONTINUED + CHANGED TO MAREVAN (WARFARIN SODIUM)
     Route: 048
     Dates: start: 20040301, end: 20040101
  2. HEPARIN [Concomitant]
     Dosage: 30,000 U/DAY

REACTIONS (4)
  - CYANOSIS [None]
  - DRUG INEFFECTIVE [None]
  - DYSPNOEA [None]
  - RESPIRATORY DISORDER [None]
